FAERS Safety Report 5677393-0 (Version None)
Quarter: 2008Q1

REPORT INFORMATION
  Report Type: 
  Country: None (occurrence: None)
  Receive Date: 20080324
  Receipt Date: 20080312
  Transmission Date: 20080703
  Serious: Yes (Other)
  Sender: FDA-Public Use
  Company Number: FR-PFIZER INC-2007036793

PATIENT
  Sex: Female
  Weight: 69 kg

DRUGS (2)
  1. LYRICA [Suspect]
     Indication: PAIN
     Dates: start: 20070226, end: 20070510
  2. LYRICA [Suspect]
     Indication: NEURALGIA

REACTIONS (8)
  - ASTHENOPIA [None]
  - CONJUNCTIVITIS [None]
  - DRY EYE [None]
  - EYE PRURITUS [None]
  - EYE SWELLING [None]
  - PUNCTATE KERATITIS [None]
  - SJOGREN'S SYNDROME [None]
  - VISION BLURRED [None]
